FAERS Safety Report 5232793-8 (Version None)
Quarter: 2007Q1

REPORT INFORMATION
  Report Type: 
  Country: None (occurrence: None)
  Receive Date: 20070207
  Receipt Date: 20070201
  Transmission Date: 20070707
  Serious: Yes (Death, Hospitalization)
  Sender: FDA-Public Use
  Company Number: PHBS2007GB02111

PATIENT
  Age: 39 Year
  Sex: Male

DRUGS (1)
  1. GLEEVEC [Suspect]
     Indication: GASTROINTESTINAL STROMAL TUMOUR
     Dosage: 400 MG, QD

REACTIONS (9)
  - ANGIOCENTRIC LYMPHOMA [None]
  - CHEST X-RAY ABNORMAL [None]
  - DYSPNOEA [None]
  - EPSTEIN-BARR VIRUS INFECTION [None]
  - LYMPHOPENIA [None]
  - PLEURAL EFFUSION [None]
  - PLEURITIC PAIN [None]
  - PRODUCTIVE COUGH [None]
  - PYREXIA [None]
